FAERS Safety Report 14105698 (Version 1)
Quarter: 2017Q4

REPORT INFORMATION
  Report Type: Report from Study
  Country: None (occurrence: US)
  Receive Date: 20171018
  Receipt Date: 20171018
  Transmission Date: 20180321
  Serious: Yes (Hospitalization, Other)
  Sender: FDA-Public Use
  Company Number: US-ABBVIE-17K-163-2022833-00

PATIENT
  Age: 59 Year
  Sex: Male
  Weight: 106.69 kg

DRUGS (1)
  1. HUMIRA [Suspect]
     Active Substance: ADALIMUMAB
     Indication: CROHN^S DISEASE
     Route: 058
     Dates: start: 201507, end: 201708

REACTIONS (8)
  - Cholecystectomy [Unknown]
  - Sepsis [Recovered/Resolved]
  - Gastrointestinal perforation [Recovered/Resolved]
  - Crohn^s disease [Recovered/Resolved]
  - Cholelithiasis [Recovered/Resolved]
  - Procedural pain [Unknown]
  - Pain [Unknown]
  - Drug ineffective [Unknown]

NARRATIVE: CASE EVENT DATE: 201612
